FAERS Safety Report 25918253 (Version 2)
Quarter: 2025Q4

REPORT INFORMATION
  Report Type: Spontaneous
  Country: US (occurrence: US)
  Receive Date: 20251014
  Receipt Date: 20251112
  Transmission Date: 20260117
  Serious: No
  Sender: GLAXOSMITHKLINE
  Company Number: US-GSK-US2025GSK128366

PATIENT
  Age: 73 Year
  Sex: Male
  Weight: 89.796 kg

DRUGS (4)
  1. WELLBUTRIN XL [Suspect]
     Active Substance: BUPROPION HYDROCHLORIDE
     Indication: Anxiety
     Dosage: 300 MG, QD
     Dates: start: 2000
  2. WELLBUTRIN XL [Suspect]
     Active Substance: BUPROPION HYDROCHLORIDE
     Indication: Depression
  3. LISINOPRIL [Concomitant]
     Active Substance: LISINOPRIL
     Indication: Product used for unknown indication
     Dosage: 2.5 MG
  4. SIMVASTATIN [Concomitant]
     Active Substance: SIMVASTATIN
     Indication: Product used for unknown indication
     Dosage: 15 MG

REACTIONS (4)
  - Anxiety [Recovered/Resolved]
  - Disease recurrence [Unknown]
  - Depression [Unknown]
  - Intentional product use issue [Unknown]
